FAERS Safety Report 19814780 (Version 2)
Quarter: 2022Q1

REPORT INFORMATION
  Report Type: Spontaneous
  Country: FR (occurrence: None)
  Receive Date: 20210910
  Receipt Date: 20220126
  Transmission Date: 20220424
  Serious: Yes (Other)
  Sender: FDA-Public Use
  Company Number: 2021A721202

PATIENT
  Age: 83 Year
  Sex: Female

DRUGS (7)
  1. ESOMEPRAZOLE [Suspect]
     Active Substance: ESOMEPRAZOLE
     Indication: Gastrooesophageal reflux disease
     Route: 048
  2. ESOMEPRAZOLE [Suspect]
     Active Substance: ESOMEPRAZOLE
     Indication: Erosive oesophagitis
     Route: 048
  3. PREVISCAN [Concomitant]
     Indication: Product used for unknown indication
     Dosage: UNK
     Route: 065
  4. AMOROLFINE ARROW [Concomitant]
     Indication: Product used for unknown indication
     Dosage: UNK
     Route: 065
  5. BROMAZEPAM [Concomitant]
     Active Substance: BROMAZEPAM
     Indication: Product used for unknown indication
     Dosage: UNK
     Route: 065
  6. NEBIVOLOL [Concomitant]
     Active Substance: NEBIVOLOL
     Indication: Product used for unknown indication
     Dosage: 0.25 DOSAGE FORM, 2/DAY
     Route: 065
  7. VASTEN [Concomitant]
     Indication: Product used for unknown indication
     Dosage: UNK
     Route: 065

REACTIONS (13)
  - Dermo-hypodermitis [Unknown]
  - Polyp [Unknown]
  - Pruritus [Unknown]
  - Blood folate decreased [Unknown]
  - Fungal infection [Unknown]
  - Paraesthesia [Unknown]
  - Arterial disorder [Unknown]
  - Rebound effect [Unknown]
  - Erythema [Unknown]
  - Off label use [Unknown]
  - Product dose omission issue [Unknown]
  - Eructation [Not Recovered/Not Resolved]
  - Abdominal discomfort [Not Recovered/Not Resolved]
